FAERS Safety Report 22255739 (Version 1)
Quarter: 2023Q2

REPORT INFORMATION
  Report Type: Spontaneous
  Country: US (occurrence: US)
  Receive Date: 20230426
  Receipt Date: 20230426
  Transmission Date: 20230721
  Serious: No
  Sender: FDA-Public Use
  Company Number: US-TEVA-2023-US-2876165

PATIENT
  Age: 48 Year
  Sex: Female

DRUGS (1)
  1. SUCRALFATE [Suspect]
     Active Substance: SUCRALFATE
     Indication: Ulcer
     Dosage: 3 GRAM DAILY; 1 GRAM

REACTIONS (3)
  - Cough [Unknown]
  - Drug ineffective [Unknown]
  - Wrong technique in product usage process [Unknown]

NARRATIVE: CASE EVENT DATE: 20230301
